FAERS Safety Report 6416112-7 (Version None)
Quarter: 2009Q4

REPORT INFORMATION
  Report Type: 
  Country: None (occurrence: None)
  Receive Date: 20091027
  Receipt Date: 20091020
  Transmission Date: 20100525
  Serious: Yes (Hospitalization, Other)
  Sender: FDA-Public Use
  Company Number: US-MERCK-0807USA00773

PATIENT
  Age: 63 Year
  Sex: Female

DRUGS (4)
  1. FOSAMAX [Suspect]
     Indication: OSTEOPOROSIS
     Route: 048
     Dates: start: 20040101, end: 20060601
  2. ZYPREXA [Concomitant]
     Indication: DEPRESSION
     Route: 065
     Dates: start: 20020401, end: 20040101
  3. TRAZODONE HYDROCHLORIDE [Concomitant]
     Indication: DEPRESSION
     Route: 065
     Dates: start: 20020306, end: 20070101
  4. PREDNISONE [Concomitant]
     Indication: RHEUMATOID ARTHRITIS
     Route: 065
     Dates: start: 19790101

REACTIONS (14)
  - ABSCESS JAW [None]
  - ALOPECIA [None]
  - BLOOD POTASSIUM DECREASED [None]
  - CACHEXIA [None]
  - CELLULITIS [None]
  - CHRONIC OBSTRUCTIVE PULMONARY DISEASE [None]
  - FALL [None]
  - JAW FRACTURE [None]
  - KYPHOSIS [None]
  - MENTAL STATUS CHANGES [None]
  - OSTEOMYELITIS [None]
  - OSTEONECROSIS [None]
  - URINARY TRACT INFECTION [None]
  - WEIGHT DECREASED [None]
